FAERS Safety Report 19650922 (Version 1)
Quarter: 2021Q3

REPORT INFORMATION
  Report Type: Report from Study
  Country: CO (occurrence: CO)
  Receive Date: 20210802
  Receipt Date: 20210802
  Transmission Date: 20211014
  Serious: Yes (Hospitalization, Other)
  Sender: FDA-Public Use
  Company Number: CO-BRISTOL-MYERS SQUIBB COMPANY-BMS-2021-048998

PATIENT
  Age: 50 Year
  Sex: Female
  Weight: 54 kg

DRUGS (2)
  1. NIVOLUMAB [Suspect]
     Active Substance: NIVOLUMAB
     Indication: MALIGNANT MELANOMA
     Dosage: 162 MILLIGRAM, EVERY 30 DAYS
     Route: 042
     Dates: start: 20200301, end: 20210721
  2. NIVOLUMAB [Suspect]
     Active Substance: NIVOLUMAB
     Dosage: EVERY 4 WEEKS OPTIONAL
     Route: 042

REACTIONS (5)
  - Off label use [Recovered/Resolved]
  - Hepatic failure [Unknown]
  - Thrombosis [Recovering/Resolving]
  - Renal failure [Unknown]
  - Malignant neoplasm progression [Recovered/Resolved]

NARRATIVE: CASE EVENT DATE: 20210501
